FAERS Safety Report 19791317 (Version 1)
Quarter: 2021Q3

REPORT INFORMATION
  Report Type: Spontaneous
  Country: US (occurrence: US)
  Receive Date: 20210906
  Receipt Date: 20210906
  Transmission Date: 20211014
  Serious: No
  Sender: FDA-Public Use
  Company Number: US-SA-2021SA292521

PATIENT
  Age: 69 Year
  Sex: Female

DRUGS (12)
  1. BROVANA [Concomitant]
     Active Substance: ARFORMOTEROL TARTRATE
     Dosage: UNK
  2. ZETIA [Concomitant]
     Active Substance: EZETIMIBE
  3. BUDESONIDE AND FORMOTEROL [Concomitant]
     Active Substance: BUDESONIDE\FORMOTEROL
  4. BUDESONIDE. [Concomitant]
     Active Substance: BUDESONIDE
  5. CLARINEX [Concomitant]
     Active Substance: DESLORATADINE
  6. LEXAPRO [Concomitant]
     Active Substance: ESCITALOPRAM OXALATE
  7. COZAAR [Concomitant]
     Active Substance: LOSARTAN POTASSIUM
  8. ESTRING [Concomitant]
     Active Substance: ESTRADIOL
  9. LIVALO [Concomitant]
     Active Substance: PITAVASTATIN CALCIUM
  10. PEPCID [Concomitant]
     Active Substance: FAMOTIDINE
  11. DUPIXENT [Suspect]
     Active Substance: DUPILUMAB
     Indication: ASTHMA
     Dosage: 300 MG, QOW
     Route: 058
     Dates: start: 20200213
  12. DILTIAZEM. [Concomitant]
     Active Substance: DILTIAZEM

REACTIONS (3)
  - Cataract operation [Not Recovered/Not Resolved]
  - Product use issue [Unknown]
  - Product dose omission issue [Unknown]

NARRATIVE: CASE EVENT DATE: 20200213
